FAERS Safety Report 15325215 (Version 4)
Quarter: 2018Q4

REPORT INFORMATION
  Report Type: Spontaneous
  Country: US (occurrence: US)
  Receive Date: 20180828
  Receipt Date: 20181001
  Transmission Date: 20190204
  Serious: Yes (Death, Other)
  Sender: FDA-Public Use
  Company Number: US-ROCHE-2175799

PATIENT
  Sex: Female

DRUGS (1)
  1. ACTIVASE [Suspect]
     Active Substance: ALTEPLASE
     Indication: CEREBROVASCULAR ACCIDENT
     Route: 040
     Dates: start: 20180822, end: 20180823

REACTIONS (5)
  - Bradycardia [Unknown]
  - Cerebrovascular accident [Fatal]
  - Haematoma [Unknown]
  - Apnoea [Unknown]
  - Blood pressure decreased [Unknown]
